FAERS Safety Report 9260738 (Version 4)
Quarter: 2016Q1

REPORT INFORMATION
  Report Type: Spontaneous
  Country: US (occurrence: US)
  Receive Date: 20130429
  Receipt Date: 20160302
  Transmission Date: 20160526
  Serious: No
  Sender: FDA-Public Use
  Company Number: US-009507513-1304USA016084

PATIENT
  Sex: Male

DRUGS (3)
  1. PROPECIA [Suspect]
     Active Substance: FINASTERIDE
     Indication: ANDROGENETIC ALOPECIA
     Dosage: 1 MG, DAILY
     Route: 048
     Dates: start: 20141009
  2. PROPECIA [Suspect]
     Active Substance: FINASTERIDE
     Indication: ALOPECIA
     Dosage: 1 MG, QD
     Route: 048
     Dates: start: 20021007, end: 20060118
  3. PROPECIA [Suspect]
     Active Substance: FINASTERIDE
     Dosage: UNK UNK, PRN
     Route: 048

REACTIONS (13)
  - Testicular pain [Unknown]
  - Fatigue [Unknown]
  - Sexual dysfunction [Not Recovered/Not Resolved]
  - Sputum abnormal [Unknown]
  - Productive cough [Unknown]
  - Chills [Unknown]
  - Hypogonadism [Unknown]
  - Anxiety [Not Recovered/Not Resolved]
  - Marital problem [Not Recovered/Not Resolved]
  - Depression [Not Recovered/Not Resolved]
  - Sinus congestion [Unknown]
  - Erectile dysfunction [Not Recovered/Not Resolved]
  - Headache [Unknown]

NARRATIVE: CASE EVENT DATE: 2005
